FAERS Safety Report 10398448 (Version 1)
Quarter: 2014Q3

REPORT INFORMATION
  Report Type: Spontaneous
  Country: US (occurrence: US)
  Receive Date: 20140821
  Receipt Date: 20140821
  Transmission Date: 20150326
  Serious: Yes (Other)
  Sender: FDA-Public Use
  Company Number: US-JNJFOC-20140815495

PATIENT
  Sex: Male

DRUGS (3)
  1. INSULIN [Concomitant]
     Active Substance: INSULIN NOS
     Indication: DIABETES MELLITUS
  2. INVOKANA [Suspect]
     Active Substance: CANAGLIFLOZIN
     Indication: TYPE 2 DIABETES MELLITUS
     Route: 048
  3. UNSPECIFIED ANTI-HYPERTENSIVE [Concomitant]
     Indication: HYPERTENSION

REACTIONS (4)
  - Weight decreased [Unknown]
  - Head injury [Unknown]
  - Dizziness [Unknown]
  - Fall [Unknown]
